FAERS Safety Report 18265696 (Version 4)
Quarter: 2021Q4

REPORT INFORMATION
  Report Type: Spontaneous
  Country: US (occurrence: US)
  Receive Date: 20200915
  Receipt Date: 20211102
  Transmission Date: 20220303
  Serious: No
  Sender: FDA-Public Use
  Company Number: US-SA-2020SA249670

PATIENT
  Age: 14 Year
  Sex: Female
  Weight: 42.585 kg

DRUGS (6)
  1. DUPIXENT [Suspect]
     Active Substance: DUPILUMAB
     Indication: Dermatitis atopic
     Dosage: 400 MG, 1X
     Route: 058
  2. DUPIXENT [Suspect]
     Active Substance: DUPILUMAB
     Dosage: 200 MG, QOW
     Route: 058
  3. DUPIXENT [Suspect]
     Active Substance: DUPILUMAB
     Dosage: UNK
  4. HUMIRA [Suspect]
     Active Substance: ADALIMUMAB
     Indication: Neonatal Crohn^s disease
     Dosage: CITRATE FREE (1 IN 14 D)
     Route: 058
     Dates: start: 20200828
  5. PFIZER-BIONTECH COVID-19 VACCINE [Concomitant]
     Active Substance: TOZINAMERAN
     Dosage: UNK
     Dates: start: 20210709, end: 20210709
  6. PFIZER-BIONTECH COVID-19 VACCINE [Concomitant]
     Active Substance: TOZINAMERAN
     Dosage: UNK
     Dates: start: 20210719, end: 20210719

REACTIONS (5)
  - Dermatitis allergic [Unknown]
  - Gingivitis [Unknown]
  - Gingival disorder [Unknown]
  - Psoriasis [Not Recovered/Not Resolved]
  - Eczema [Unknown]
